FAERS Safety Report 20748039 (Version 1)
Quarter: 2022Q2

REPORT INFORMATION
  Report Type: Report from Study
  Country: IE (occurrence: GB)
  Receive Date: 20220426
  Receipt Date: 20220426
  Transmission Date: 20220720
  Serious: Yes (Death, Hospitalization, Other)
  Sender: FDA-Public Use
  Company Number: None

PATIENT
  Age: 74 Year
  Sex: Male

DRUGS (132)
  1. CYCLOPHOSPHAMIDE [Suspect]
     Active Substance: CYCLOPHOSPHAMIDE
     Indication: Plasma cell myeloma
     Dosage: 4 MG, QW
     Route: 048
     Dates: start: 20191213, end: 20191226
  2. CYCLOPHOSPHAMIDE [Suspect]
     Active Substance: CYCLOPHOSPHAMIDE
     Dosage: UNK
     Route: 065
     Dates: end: 2019
  3. CYCLOPHOSPHAMIDE [Suspect]
     Active Substance: CYCLOPHOSPHAMIDE
     Dosage: 300 MG, QD
     Route: 048
     Dates: start: 20190907, end: 20191010
  4. CYCLOPHOSPHAMIDE [Suspect]
     Active Substance: CYCLOPHOSPHAMIDE
     Dosage: 300 MG, QW
     Route: 048
     Dates: start: 20191213, end: 20191228
  5. CYCLOPHOSPHAMIDE [Suspect]
     Active Substance: CYCLOPHOSPHAMIDE
     Dosage: UNK
     Route: 065
     Dates: end: 20191213
  6. DEXAMETHASONE [Suspect]
     Active Substance: DEXAMETHASONE
     Indication: Plasma cell myeloma
     Dosage: 20 MG, QW
     Route: 048
     Dates: start: 20190614, end: 20190830
  7. DEXAMETHASONE [Suspect]
     Active Substance: DEXAMETHASONE
     Dosage: UNK
     Route: 048
  8. DEXAMETHASONE [Suspect]
     Active Substance: DEXAMETHASONE
     Dosage: 20 MG, QW
     Route: 048
     Dates: start: 20190906, end: 20191010
  9. DEXAMETHASONE [Suspect]
     Active Substance: DEXAMETHASONE
     Dosage: 20 MG, QD
     Route: 048
     Dates: start: 20190906, end: 20191228
  10. DEXAMETHASONE [Suspect]
     Active Substance: DEXAMETHASONE
     Dosage: 20 MG, QW
     Route: 048
     Dates: start: 20191213, end: 20191228
  11. DEXAMETHASONE [Suspect]
     Active Substance: DEXAMETHASONE
     Dosage: 20 MG, QW
     Route: 048
     Dates: start: 20180821, end: 20190101
  12. IXAZOMIB [Suspect]
     Active Substance: IXAZOMIB
     Indication: Plasma cell myeloma
     Dosage: 4 MG, QW
     Route: 048
     Dates: start: 20190803, end: 20190809
  13. IXAZOMIB [Suspect]
     Active Substance: IXAZOMIB
     Dosage: 4 MG, QW
     Route: 048
     Dates: start: 20190620, end: 20190802
  14. IXAZOMIB [Suspect]
     Active Substance: IXAZOMIB
     Dosage: 4 MG, QW
     Route: 048
     Dates: start: 20190615, end: 20190615
  15. IXAZOMIB [Suspect]
     Active Substance: IXAZOMIB
     Dosage: UNK
     Route: 048
  16. IXAZOMIB [Suspect]
     Active Substance: IXAZOMIB
     Dosage: 4 MG, QW
     Route: 048
     Dates: start: 20190810, end: 20190824
  17. IXAZOMIB [Suspect]
     Active Substance: IXAZOMIB
     Dosage: 4 MG, QW
     Route: 048
     Dates: start: 20190615, end: 20190622
  18. IXAZOMIB [Suspect]
     Active Substance: IXAZOMIB
     Dosage: 4 MG, QW
     Route: 048
     Dates: start: 20190629, end: 20190713
  19. IXAZOMIB [Suspect]
     Active Substance: IXAZOMIB
     Dosage: 4 MILLIGRAM
     Route: 065
     Dates: start: 20191213, end: 20191226
  20. REVLIMID [Suspect]
     Active Substance: LENALIDOMIDE
     Indication: Plasma cell myeloma
     Dosage: 25 MG, QD
     Route: 048
     Dates: start: 20181112, end: 20181202
  21. REVLIMID [Suspect]
     Active Substance: LENALIDOMIDE
     Dosage: 25 MG, QD (25 MILLIGRAM)
     Route: 048
     Dates: start: 20190906, end: 20191010
  22. REVLIMID [Suspect]
     Active Substance: LENALIDOMIDE
     Dosage: 25 MG, QD
     Route: 048
     Dates: start: 20191112, end: 20191202
  23. REVLIMID [Suspect]
     Active Substance: LENALIDOMIDE
     Dosage: 25 MG, QD
     Route: 048
     Dates: start: 20191213, end: 20191231
  24. REVLIMID [Suspect]
     Active Substance: LENALIDOMIDE
     Dosage: 25 MG, QD
     Route: 048
     Dates: start: 20180917, end: 20181007
  25. REVLIMID [Suspect]
     Active Substance: LENALIDOMIDE
     Dosage: 25 MG, QD (25 MILLIGRAM)
     Route: 048
     Dates: start: 20190614, end: 20190704
  26. REVLIMID [Suspect]
     Active Substance: LENALIDOMIDE
     Dosage: 25 MG, QD
     Route: 048
     Dates: start: 20191210
  27. REVLIMID [Suspect]
     Active Substance: LENALIDOMIDE
     Dosage: 25 MG, QD
     Route: 048
     Dates: start: 20190809, end: 20190829
  28. REVLIMID [Suspect]
     Active Substance: LENALIDOMIDE
     Dosage: 25 MG, QD
     Route: 048
     Dates: start: 20181015, end: 20181104
  29. REVLIMID [Suspect]
     Active Substance: LENALIDOMIDE
     Dosage: 25 MG, QD
     Route: 048
     Dates: start: 20190906, end: 20191231
  30. REVLIMID [Suspect]
     Active Substance: LENALIDOMIDE
     Dosage: 25 MG, QD
     Route: 048
     Dates: start: 20181210, end: 20181231
  31. REVLIMID [Suspect]
     Active Substance: LENALIDOMIDE
     Dosage: 25 MG, QD
     Route: 048
     Dates: start: 20190712, end: 20190801
  32. REVLIMID [Suspect]
     Active Substance: LENALIDOMIDE
     Dosage: 25 MG, QD
     Route: 048
     Dates: start: 20180821, end: 20180909
  33. REVLIMID [Suspect]
     Active Substance: LENALIDOMIDE
     Dosage: 25 MG, QD
     Route: 048
     Dates: start: 20190906, end: 20191010
  34. REVLIMID [Suspect]
     Active Substance: LENALIDOMIDE
     Dosage: 25 MILLIGRAM, QD
     Route: 048
     Dates: start: 20191112, end: 20191202
  35. BUDESONIDE [Concomitant]
     Active Substance: BUDESONIDE
     Indication: Chronic obstructive pulmonary disease
     Dosage: 1 MG, QD
     Route: 048
     Dates: start: 20200107
  36. ASPIRIN [Concomitant]
     Active Substance: ASPIRIN
     Indication: Prophylaxis
     Dosage: 75 MG, QD
     Route: 048
  37. ASPIRIN [Concomitant]
     Active Substance: ASPIRIN
     Dosage: 75 MG, QD
     Route: 048
  38. CARBOHYDRATES\FATTY ACIDS\MINERALS\PROTEIN\VITAMINS [Concomitant]
     Active Substance: CARBOHYDRATES\FATTY ACIDS\MINERALS\PROTEIN\VITAMINS
     Indication: Malnutrition
     Dosage: 2 UNK, QD
     Route: 048
     Dates: start: 20190103, end: 20191011
  39. CARBOHYDRATES\FATTY ACIDS\MINERALS\PROTEIN\VITAMINS [Concomitant]
     Active Substance: CARBOHYDRATES\FATTY ACIDS\MINERALS\PROTEIN\VITAMINS
     Dosage: 2 OT, QD
     Route: 042
     Dates: start: 20190103, end: 20191011
  40. CARBOHYDRATES\FATTY ACIDS\MINERALS\PROTEIN\VITAMINS [Concomitant]
     Active Substance: CARBOHYDRATES\FATTY ACIDS\MINERALS\PROTEIN\VITAMINS
     Dosage: 2 UNK, QD
     Route: 042
     Dates: start: 20190103, end: 20191011
  41. VITAMINS [Concomitant]
     Active Substance: VITAMINS
     Indication: Prophylaxis
     Dosage: 1 DF, QD
     Route: 048
     Dates: start: 20190104
  42. DIETARY SUPPLEMENT [Concomitant]
     Active Substance: DIETARY SUPPLEMENT
     Indication: Malnutrition
     Dosage: 1 OT, QD (1 CARTON)
     Route: 048
     Dates: start: 20190102, end: 20191029
  43. CHLORHEXIDINE [Concomitant]
     Active Substance: CHLORHEXIDINE
     Indication: Tongue coated
     Dosage: 30 ML, QD (30 MILLILITER)
     Route: 048
     Dates: start: 20191116, end: 20191220
  44. Decapeptyl [Concomitant]
     Indication: Prostate cancer
     Dosage: 11.25 MILLIGRAM, Q12MO
     Route: 065
     Dates: start: 20190515
  45. Decapeptyl [Concomitant]
     Dosage: 18.247 MILLIGRAM
     Route: 065
  46. Decapeptyl [Concomitant]
     Dosage: 45 MILLIGRAM, (1 DOSE YEARLY, 11.25 MG)
     Route: 065
     Dates: start: 20190515
  47. Decapeptyl [Concomitant]
     Dosage: 45 MILLIGRAM, (1 DOSE YEARLY, 11.25 MG)
     Route: 065
     Dates: start: 20190515
  48. Decapeptyl [Concomitant]
     Dosage: UNK
     Route: 065
  49. METOPROLOL [Concomitant]
     Active Substance: METOPROLOL
     Indication: Hypertension
     Dosage: 50 MG, QD
     Route: 048
  50. CALCIUM\CHOLECALCIFEROL [Concomitant]
     Active Substance: CALCIUM\CHOLECALCIFEROL
     Indication: Bone disorder
     Dosage: 4 DF, QD (2 TABLET, 2 DF, BID)
     Route: 048
     Dates: start: 20190212, end: 20191015
  51. CALCIUM\CHOLECALCIFEROL [Concomitant]
     Active Substance: CALCIUM\CHOLECALCIFEROL
     Indication: Prophylaxis
     Dosage: 2 TABLET
     Route: 048
     Dates: start: 20191016, end: 20191029
  52. CALCIUM\CHOLECALCIFEROL [Concomitant]
     Active Substance: CALCIUM\CHOLECALCIFEROL
     Dosage: 6 DF, QD
     Route: 048
     Dates: start: 20190103, end: 20190211
  53. CALCIUM\CHOLECALCIFEROL [Concomitant]
     Active Substance: CALCIUM\CHOLECALCIFEROL
     Dosage: 2 DOSAGE FORM, TID, 2 TABLET
     Route: 048
     Dates: start: 20190103, end: 20190211
  54. CALCIUM\CHOLECALCIFEROL [Concomitant]
     Active Substance: CALCIUM\CHOLECALCIFEROL
     Dosage: 6 DOSAGE FORM, QD (2 DOSAGE FORM, TID, 2 TABLET)
     Route: 048
     Dates: start: 20190103, end: 20190211
  55. CALCIUM\CHOLECALCIFEROL [Concomitant]
     Active Substance: CALCIUM\CHOLECALCIFEROL
     Dosage: 2 DOSAGE FORM, OD, 2 TABLET
     Route: 048
     Dates: start: 20191016, end: 20191029
  56. CALCIUM\CHOLECALCIFEROL [Concomitant]
     Active Substance: CALCIUM\CHOLECALCIFEROL
     Dosage: 2 DOSAGE FORM, BID
     Route: 048
     Dates: start: 20190103, end: 20191011
  57. CALCIUM\CHOLECALCIFEROL [Concomitant]
     Active Substance: CALCIUM\CHOLECALCIFEROL
     Dosage: UNK UNK, BID
     Route: 048
     Dates: start: 20190103, end: 20190211
  58. CALCIUM\CHOLECALCIFEROL [Concomitant]
     Active Substance: CALCIUM\CHOLECALCIFEROL
     Dosage: 2 DOSAGE FORM, BID, 2 TABLET (4 DOSAGE FORM, QD)
     Route: 048
     Dates: start: 20190212, end: 20191015
  59. AMLODIPINE [Concomitant]
     Active Substance: AMLODIPINE BESYLATE
     Indication: Hypertension
     Dosage: 10 MG, QD
     Route: 048
     Dates: end: 20191204
  60. PANTOPRAZOLE [Concomitant]
     Active Substance: PANTOPRAZOLE
     Indication: Prophylaxis
     Dosage: 80 MG, QD
     Route: 048
     Dates: start: 20191016
  61. PANTOPRAZOLE [Concomitant]
     Active Substance: PANTOPRAZOLE
     Dosage: 20 MG, QD
     Route: 048
     Dates: start: 20190102, end: 20191015
  62. SULFAMETHOXAZOLE\TRIMETHOPRIM [Concomitant]
     Active Substance: SULFAMETHOXAZOLE\TRIMETHOPRIM
     Indication: Prophylaxis
     Dosage: 10 ML, QD (LIQUID)
     Route: 048
     Dates: start: 20191011
  63. SULFAMETHOXAZOLE\TRIMETHOPRIM [Concomitant]
     Active Substance: SULFAMETHOXAZOLE\TRIMETHOPRIM
     Dosage: 20 MILLILITER, QD
     Route: 048
     Dates: start: 20190102, end: 20191015
  64. VALACYCLOVIR HYDROCHLORIDE [Concomitant]
     Active Substance: VALACYCLOVIR HYDROCHLORIDE
     Indication: Prophylaxis
     Dosage: 500 MG, QD
     Route: 054
     Dates: start: 20190817
  65. COTRIMOXAZOLE [Concomitant]
     Active Substance: SULFAMETHOXAZOLE\TRIMETHOPRIM
     Indication: Antifungal prophylaxis
     Dosage: 480 MG, QD
     Route: 048
     Dates: start: 20180817, end: 20191015
  66. COTRIMOXAZOLE [Concomitant]
     Active Substance: SULFAMETHOXAZOLE\TRIMETHOPRIM
     Dosage: 480 MILLIGRAM, OD
     Route: 048
     Dates: start: 20180817, end: 20191015
  67. MYCOSTATIN [Concomitant]
     Active Substance: NYSTATIN
     Indication: Tongue coated
     Dosage: 3 ML, QD
     Route: 048
     Dates: start: 20191116, end: 20191220
  68. MYCOSTATIN [Concomitant]
     Active Substance: NYSTATIN
     Indication: Prophylaxis
     Dosage: 1 DOSAGE FORM, UNK
     Route: 048
     Dates: start: 20190104
  69. MYCOSTATIN [Concomitant]
     Active Substance: NYSTATIN
     Dosage: UNK
     Route: 065
  70. MYCOSTATIN [Concomitant]
     Active Substance: NYSTATIN
     Dosage: 1 DOSAGE FORM
     Route: 048
     Dates: end: 20190104
  71. MYCOSTATIN [Concomitant]
     Active Substance: NYSTATIN
     Dosage: 3 MILLILITER, TID (9 ML, QD)
     Route: 048
     Dates: start: 20191116, end: 20191220
  72. MYCOSTATIN [Concomitant]
     Active Substance: NYSTATIN
     Dosage: 1 DOSAGE FORM, UNK
     Route: 065
     Dates: start: 20190104
  73. MYCOSTATIN [Concomitant]
     Active Substance: NYSTATIN
     Dosage: UNK
     Route: 065
  74. FOLIC ACID [Concomitant]
     Active Substance: FOLIC ACID
     Indication: Anaemia
     Dosage: 5 MILLIGRAM
     Route: 048
  75. FOLIC ACID [Concomitant]
     Active Substance: FOLIC ACID
     Dosage: 5 MILLIGRAM
     Route: 048
  76. FOLIC ACID [Concomitant]
     Active Substance: FOLIC ACID
     Dosage: 5 MILLIGRAM, QD
     Route: 048
  77. FOLIC ACID [Concomitant]
     Active Substance: FOLIC ACID
     Dosage: 5 MILLIGRAM, QD
     Route: 048
  78. FOLIC ACID [Concomitant]
     Active Substance: FOLIC ACID
     Dosage: 5 MILLIGRAM
     Route: 048
  79. CYCLOPHOSPHAMIDE [Concomitant]
     Active Substance: CYCLOPHOSPHAMIDE
     Indication: Plasma cell myeloma
     Dosage: 300 MG, QW
     Route: 048
     Dates: start: 20191213, end: 20191228
  80. CYCLOPHOSPHAMIDE [Concomitant]
     Active Substance: CYCLOPHOSPHAMIDE
     Dosage: 300 MG, QD
     Route: 048
     Dates: start: 20190907, end: 20191010
  81. CYCLOPHOSPHAMIDE [Concomitant]
     Active Substance: CYCLOPHOSPHAMIDE
     Dosage: 11100 MILLIGRAM
     Route: 065
     Dates: start: 20191213
  82. CYCLOPHOSPHAMIDE [Concomitant]
     Active Substance: CYCLOPHOSPHAMIDE
     Dosage: 7800 MILLIGRAM
     Route: 065
     Dates: start: 20191213
  83. CYCLOPHOSPHAMIDE [Concomitant]
     Active Substance: CYCLOPHOSPHAMIDE
     Dosage: 4 MILLIGRAM, QW
     Route: 048
     Dates: start: 20191213, end: 20191226
  84. CYCLOPHOSPHAMIDE [Concomitant]
     Active Substance: CYCLOPHOSPHAMIDE
     Dosage: 300 MILLIGRAM, OD
     Route: 048
     Dates: start: 20191010
  85. CYCLOPHOSPHAMIDE [Concomitant]
     Active Substance: CYCLOPHOSPHAMIDE
     Dosage: 300 MILLIGRAM, QD
     Route: 048
     Dates: start: 20190907, end: 20190907
  86. CYCLOPHOSPHAMIDE [Concomitant]
     Active Substance: CYCLOPHOSPHAMIDE
     Dosage: UNK
     Route: 065
     Dates: end: 2019
  87. CYCLOPHOSPHAMIDE [Concomitant]
     Active Substance: CYCLOPHOSPHAMIDE
     Dosage: UNK
     Route: 065
     Dates: end: 2019
  88. CYCLOPHOSPHAMIDE [Concomitant]
     Active Substance: CYCLOPHOSPHAMIDE
     Dosage: UNK
     Route: 065
     Dates: end: 2019
  89. CYCLOPHOSPHAMIDE [Concomitant]
     Active Substance: CYCLOPHOSPHAMIDE
     Dosage: UNK
     Route: 065
     Dates: end: 20191213
  90. CYCLOPHOSPHAMIDE [Concomitant]
     Active Substance: CYCLOPHOSPHAMIDE
     Dosage: UNK
     Route: 065
     Dates: end: 20191213
  91. CYCLOPHOSPHAMIDE [Concomitant]
     Active Substance: CYCLOPHOSPHAMIDE
     Dosage: 11100 MILLIGRAM
     Route: 065
     Dates: end: 20191213
  92. CYCLOPHOSPHAMIDE [Concomitant]
     Active Substance: CYCLOPHOSPHAMIDE
     Dosage: 300 MILLIGRAM, OD
     Route: 048
  93. CYCLOPHOSPHAMIDE [Concomitant]
     Active Substance: CYCLOPHOSPHAMIDE
     Dosage: UNK
     Route: 065
     Dates: start: 20191213
  94. CYCLOPHOSPHAMIDE [Concomitant]
     Active Substance: CYCLOPHOSPHAMIDE
     Dosage: 300 MILLIGRAM, OD
     Route: 048
     Dates: start: 2019
  95. CYCLOPHOSPHAMIDE [Concomitant]
     Active Substance: CYCLOPHOSPHAMIDE
     Dosage: 300 MILLIGRAM, OD
     Route: 048
     Dates: end: 20191213
  96. CYCLOPHOSPHAMIDE [Concomitant]
     Active Substance: CYCLOPHOSPHAMIDE
     Dosage: UNK
     Route: 065
     Dates: end: 2019
  97. CYCLOPHOSPHAMIDE [Concomitant]
     Active Substance: CYCLOPHOSPHAMIDE
     Dosage: 300 MILLIGRAM, OD
     Route: 048
  98. CYCLOPHOSPHAMIDE [Concomitant]
     Active Substance: CYCLOPHOSPHAMIDE
     Dosage: 300 MILLIGRAM, OD
     Route: 048
     Dates: start: 20190907, end: 20191010
  99. CYCLOPHOSPHAMIDE [Concomitant]
     Active Substance: CYCLOPHOSPHAMIDE
     Dosage: 300 MILLIGRAM, OD
     Route: 048
     Dates: start: 20191213
  100. CYCLOPHOSPHAMIDE [Concomitant]
     Active Substance: CYCLOPHOSPHAMIDE
     Dosage: 7800 MILLIGRAM
     Route: 065
     Dates: start: 2019, end: 20191213
  101. MEGACE [Concomitant]
     Active Substance: MEGESTROL ACETATE
     Indication: Malnutrition
     Dosage: 15 ML, QD
     Route: 048
     Dates: start: 20191011
  102. MEGACE [Concomitant]
     Active Substance: MEGESTROL ACETATE
     Dosage: 7.5 MILLILITER, QD
     Route: 048
     Dates: start: 20191011
  103. MEGACE [Concomitant]
     Active Substance: MEGESTROL ACETATE
     Dosage: 15 MILLILITER, QD
     Route: 048
     Dates: start: 20191019
  104. ZOLPIDEM [Concomitant]
     Active Substance: ZOLPIDEM TARTRATE
     Indication: Prophylaxis
     Dosage: 10 MG
     Route: 048
     Dates: start: 20180816, end: 20191029
  105. TINZAPARIN [Concomitant]
     Active Substance: TINZAPARIN
     Indication: Prophylaxis
     Dosage: 10000 IU (INTERNATIONAL UNIT)
     Route: 058
     Dates: start: 20190110
  106. ZOLEDRONIC ACID [Concomitant]
     Active Substance: ZOLEDRONIC ACID
     Indication: Prophylaxis
     Dosage: 4 MG, QMO
     Route: 041
     Dates: start: 20181106
  107. ZOLEDRONIC ACID [Concomitant]
     Active Substance: ZOLEDRONIC ACID
     Dosage: 4 MILLIGRAM, OD
     Route: 041
     Dates: start: 20181106
  108. ZOLEDRONIC ACID [Concomitant]
     Active Substance: ZOLEDRONIC ACID
     Dosage: 4 MILLIGRAM
     Route: 041
     Dates: start: 20181106
  109. ZOLEDRONIC ACID [Concomitant]
     Active Substance: ZOLEDRONIC ACID
     Dosage: 4 MILLIGRAM, OD
     Route: 041
     Dates: start: 20181106
  110. SODIUM FLUORIDE [Concomitant]
     Active Substance: SODIUM FLUORIDE
     Indication: Malnutrition
     Dosage: 90 ML, QD
     Route: 048
     Dates: start: 20190103
  111. INFLUENZA VIRUS VACCINE [Concomitant]
     Active Substance: INFLUENZA VIRUS VACCINE
     Indication: Prophylaxis
     Dosage: 1 DF, QD (1 AMPULE)
     Route: 065
     Dates: start: 20191112, end: 20191112
  112. CALCIUM CARBONATE [Concomitant]
     Active Substance: CALCIUM CARBONATE
     Indication: Malnutrition
     Dosage: UNK UNK, BID
     Route: 048
     Dates: start: 20190103, end: 20191011
  113. MAGNESIUM OXIDE [Concomitant]
     Active Substance: MAGNESIUM OXIDE
     Indication: Malnutrition
     Dosage: UNK, UNK, QD
     Route: 048
     Dates: start: 20190103, end: 20191011
  114. MAGNESIUM OXIDE [Concomitant]
     Active Substance: MAGNESIUM OXIDE
     Dosage: UNK UNK, BID
     Route: 048
     Dates: start: 20190103, end: 20191011
  115. MAGNESIUM OXIDE [Concomitant]
     Active Substance: MAGNESIUM OXIDE
     Dosage: UNK
     Route: 065
  116. ZINC SULFATE [Concomitant]
     Active Substance: ZINC SULFATE
     Indication: Malnutrition
     Dosage: UNK, BID
     Route: 048
     Dates: start: 20190103, end: 20191011
  117. ZINC SULFATE [Concomitant]
     Active Substance: ZINC SULFATE
     Dosage: UNK
     Route: 065
  118. VITAMIN D NOS [Concomitant]
     Active Substance: VITAMIN D NOS
     Indication: Malnutrition
     Dosage: UNK UNK, BID
     Route: 048
     Dates: start: 20190103, end: 20191011
  119. VITAMIN D NOS [Concomitant]
     Active Substance: VITAMIN D NOS
     Dosage: UNK, BID
     Route: 048
     Dates: start: 20190102, end: 20191029
  120. VITAMIN D NOS [Concomitant]
     Active Substance: VITAMIN D NOS
     Dosage: UNK, QD
     Route: 048
     Dates: start: 20190102, end: 20191029
  121. VITAMIN D NOS [Concomitant]
     Active Substance: VITAMIN D NOS
     Dosage: UNK
     Route: 065
     Dates: start: 20190103, end: 20191011
  122. VITAMIN D NOS [Concomitant]
     Active Substance: VITAMIN D NOS
     Dosage: UNK UNK, QD
     Route: 065
     Dates: start: 20190102, end: 20190129
  123. VITAMIN D NOS [Concomitant]
     Active Substance: VITAMIN D NOS
     Dosage: UNK UNK, BID
     Route: 065
     Dates: start: 20190103, end: 20191011
  124. CUPRIC SULFATE ANHYDROUS [Concomitant]
     Active Substance: CUPRIC SULFATE ANHYDROUS
     Indication: Malnutrition
     Dosage: UNK
     Route: 065
  125. CUPRIC SULFATE ANHYDROUS [Concomitant]
     Active Substance: CUPRIC SULFATE ANHYDROUS
     Dosage: UNK UNK, BID
     Route: 048
     Dates: start: 20190103, end: 20191011
  126. INFLUENZA VIRUS VACCINE [Concomitant]
     Active Substance: INFLUENZA VIRUS VACCINE
     Indication: Prophylaxis
     Dosage: UNK
     Route: 065
  127. INFLUENZA VIRUS VACCINE [Concomitant]
     Active Substance: INFLUENZA VIRUS VACCINE
     Dosage: 1 DOSAGE FORM (1 AMPULE), OD,
     Route: 065
     Dates: start: 20191112, end: 20191112
  128. SODIUM FLUORIDE [Concomitant]
     Active Substance: SODIUM FLUORIDE
     Indication: Malnutrition
     Dosage: UNK
     Route: 065
  129. SODIUM FLUORIDE [Concomitant]
     Active Substance: SODIUM FLUORIDE
     Dosage: 90 MILLILITRE, QD
     Route: 048
     Dates: start: 20190103
  130. SODIUM FLUORIDE [Concomitant]
     Active Substance: SODIUM FLUORIDE
     Dosage: 90 MILLILITRE, QD
     Route: 048
     Dates: start: 20190103
  131. MANGANESE SULFATE [Concomitant]
     Active Substance: MANGANESE SULFATE
     Indication: Malnutrition
     Dosage: UNK
     Route: 065
  132. MANGANESE SULFATE [Concomitant]
     Active Substance: MANGANESE SULFATE
     Dosage: UNK UNK, BID
     Route: 048
     Dates: start: 20190103, end: 20191011

REACTIONS (13)
  - COVID-19 [Fatal]
  - Respiratory tract infection [Recovered/Resolved]
  - Respiratory tract infection [Recovered/Resolved]
  - Respiratory tract infection bacterial [Recovered/Resolved]
  - Respiratory tract infection [Recovering/Resolving]
  - Respiratory tract infection [Recovered/Resolved]
  - Thrombocytopenia [Recovered/Resolved]
  - Respiratory tract infection viral [Not Recovered/Not Resolved]
  - Platelet count decreased [Recovered/Resolved]
  - Respiratory tract infection [Recovered/Resolved]
  - Respiratory tract infection [Recovered/Resolved]
  - Respiratory tract infection [Recovered/Resolved]
  - Pulmonary embolism [Not Recovered/Not Resolved]

NARRATIVE: CASE EVENT DATE: 20191002
